FAERS Safety Report 17895931 (Version 1)
Quarter: 2020Q2

REPORT INFORMATION
  Report Type: Spontaneous
  Country: US (occurrence: US)
  Receive Date: 20200615
  Receipt Date: 20200615
  Transmission Date: 20200714
  Serious: No
  Sender: FDA-Public Use
  Company Number: US-JNJFOC-20200617756

PATIENT
  Age: 41 Year
  Sex: Female
  Weight: 81.27 kg

DRUGS (2)
  1. METHOTREXATE. [Concomitant]
     Active Substance: METHOTREXATE
     Indication: ARTHRITIS
     Route: 048
  2. SIMPONI [Suspect]
     Active Substance: GOLIMUMAB
     Indication: RHEUMATOID ARTHRITIS
     Route: 058
     Dates: start: 202004

REACTIONS (4)
  - Gait inability [Unknown]
  - Device malfunction [Unknown]
  - Accidental exposure to product [Unknown]
  - Product dose omission [Unknown]

NARRATIVE: CASE EVENT DATE: 202005
